FAERS Safety Report 8825296 (Version 1)
Quarter: 2012Q4

REPORT INFORMATION
  Report Type: 
  Country: IT (occurrence: IT)
  Receive Date: 20121004
  Receipt Date: 20121004
  Transmission Date: 20130627
  Serious: Yes (Hospitalization)
  Sender: FDA-Public Use
  Company Number: IT-WATSON-2012-16643

PATIENT
  Age: 51 Year
  Sex: Male

DRUGS (1)
  1. RAPAFLO (WATSON LABORATORIES) [Suspect]
     Indication: BENIGN PROSTATIC HYPERPLASIA
     Dosage: 1 DF;1X
     Route: 065
     Dates: start: 20120511, end: 20120511

REACTIONS (2)
  - Chest pain [Recovering/Resolving]
  - Syncope [Recovering/Resolving]
